FAERS Safety Report 6547082-9 (Version None)
Quarter: 2010Q1

REPORT INFORMATION
  Report Type: 
  Country: None (occurrence: None)
  Receive Date: 20100122
  Receipt Date: 20100113
  Transmission Date: 20100710
  Serious: Yes (Death)
  Sender: FDA-Public Use
  Company Number: US-MERCK-1001USA01521

PATIENT
  Age: 59 Year
  Sex: Male

DRUGS (7)
  1. TIAMATE [Suspect]
     Route: 048
  2. ALPRAZOLAM [Suspect]
     Route: 065
  3. ESOMEPRAZOLE [Suspect]
     Route: 065
  4. SOTALOL HYDROCHLORIDE [Suspect]
     Route: 065
  5. POTASSIUM SALICYLATE [Suspect]
     Route: 065
  6. HYDROMORPHONE [Suspect]
     Route: 065
  7. MORPHINA [Suspect]
     Route: 065

REACTIONS (2)
  - COMPLETED SUICIDE [None]
  - OVERDOSE [None]
